FAERS Safety Report 12680984 (Version 2)
Quarter: 2016Q3

REPORT INFORMATION
  Report Type: Spontaneous
  Country: CN (occurrence: CN)
  Receive Date: 20160824
  Receipt Date: 20160824
  Transmission Date: 20161109
  Serious: Yes (Hospitalization)
  Sender: FDA-Public Use
  Company Number: CN-BAYER-2016-159592

PATIENT
  Age: 50 Year
  Sex: Female

DRUGS (2)
  1. ADALAT [Suspect]
     Active Substance: NIFEDIPINE
     Indication: HYPERTENSION
     Dosage: 30 MG, QD
     Route: 048
     Dates: start: 2014
  2. BAYASPIRIN [Suspect]
     Active Substance: ASPIRIN
     Indication: HYPERTENSION
     Dosage: 100 MG, QD
     Route: 048

REACTIONS (4)
  - Headache [None]
  - Vomiting [None]
  - Blood pressure inadequately controlled [None]
  - Off label use [None]
